FAERS Safety Report 20144679 (Version 1)
Quarter: 2021Q4

REPORT INFORMATION
  Report Type: Spontaneous
  Country: US (occurrence: US)
  Receive Date: 20211203
  Receipt Date: 20211203
  Transmission Date: 20220303
  Serious: Yes (Other)
  Sender: FDA-Public Use
  Company Number: US-SA-SAC20211202000670

PATIENT
  Sex: Female

DRUGS (1)
  1. DUPIXENT [Suspect]
     Active Substance: DUPILUMAB
     Indication: Illness
     Dosage: 300 MG, QOW
     Route: 058

REACTIONS (7)
  - Sinus disorder [Unknown]
  - Epistaxis [Unknown]
  - Sinus pain [Unknown]
  - Nasal crusting [Unknown]
  - Nasal dryness [Unknown]
  - Tenderness [Unknown]
  - Product use in unapproved indication [Unknown]
